FAERS Safety Report 10174731 (Version 1)
Quarter: 2014Q2

REPORT INFORMATION
  Report Type: Spontaneous
  Country: US (occurrence: None)
  Receive Date: 20140416
  Receipt Date: 20140416
  Transmission Date: 20141212
  Serious: No
  Sender: FDA-Public Use
  Company Number: 163-POMAL-13092586

PATIENT
  Age: 83 Year
  Sex: Male

DRUGS (10)
  1. POMALYST [Suspect]
     Indication: PLASMA CELL MYELOMA
     Dosage: 4 MG, 10 IN 10 D, PO
     Route: 048
     Dates: start: 20130516, end: 2013
  2. ACYCLOVIR (ACICLOVIR) (ACICLOVIR) [Concomitant]
  3. KEPPRA (LEVETIRACETAM) [Concomitant]
  4. LOPRESSOR (METOPROLOL TARTRATE) [Concomitant]
  5. AMITRIPTYLINE HCL (AMITRIPTYLINE HYDROCHLORIDE) [Concomitant]
  6. FENTANYL CITRATE (FENTANYL CITRATE) [Concomitant]
  7. LEVEMIR (INSULIN DETEMIR) [Concomitant]
  8. PLAVIX (CLOPIDOGREL SULFATE) [Concomitant]
  9. DEXAMETHASONE (DEXAMETHASONE) [Concomitant]
  10. ALBUTEROL SULFATE  (SALBUTAMOL SULFATE) [Concomitant]

REACTIONS (2)
  - Laboratory test abnormal [None]
  - Fatigue [None]
